FAERS Safety Report 21249973 (Version 1)
Quarter: 2022Q3

REPORT INFORMATION
  Report Type: Spontaneous
  Country: US (occurrence: None)
  Receive Date: 20220823
  Receipt Date: 20220823
  Transmission Date: 20221027
  Serious: No
  Sender: FDA-Public Use
  Company Number: None

PATIENT
  Age: 30 Year
  Sex: Female

DRUGS (1)
  1. COSENTYX [Suspect]
     Active Substance: SECUKINUMAB
     Indication: Psoriatic arthropathy
     Dosage: FREQUENCY : MONTHLY;?
     Route: 058
     Dates: start: 202102

REACTIONS (5)
  - Device defective [None]
  - Device deployment issue [None]
  - Needle issue [None]
  - Device delivery system issue [None]
  - Therapy interrupted [None]

NARRATIVE: CASE EVENT DATE: 20220823
